FAERS Safety Report 6656942-X (Version None)
Quarter: 2010Q1

REPORT INFORMATION
  Report Type: 
  Country: None (occurrence: None)
  Receive Date: 20100329
  Receipt Date: 20100329
  Transmission Date: 20100710
  Serious: Yes (Death, Hospitalization)
  Sender: FDA-Public Use
  Company Number: None

PATIENT
  Age: 40 Year
  Sex: Female
  Weight: 133 kg

DRUGS (1)
  1. ALDOMET [Suspect]
     Indication: HYPERTENSION
     Dosage: UNK UNK ORAL 047
     Route: 048

REACTIONS (7)
  - BRAIN OEDEMA [None]
  - COAGULOPATHY [None]
  - ENCEPHALOPATHY [None]
  - JAUNDICE [None]
  - MULTI-ORGAN FAILURE [None]
  - RENAL FAILURE ACUTE [None]
  - RESPIRATORY FAILURE [None]
